FAERS Safety Report 11218330 (Version 2)
Quarter: 2015Q3

REPORT INFORMATION
  Report Type: Report from Study
  Country: JP (occurrence: JP)
  Receive Date: 20150625
  Receipt Date: 20150701
  Transmission Date: 20151125
  Serious: Yes (Hospitalization)
  Sender: FDA-Public Use
  Company Number: JP-MERCK-1506JPN011542

PATIENT
  Age: 55 Year
  Sex: Female
  Weight: 51.6 kg

DRUGS (18)
  1. PEMBROLIZUMAB. [Suspect]
     Active Substance: PEMBROLIZUMAB
     Dosage: 2 MG/KG, Q3W
     Route: 042
     Dates: start: 20150602, end: 20150602
  2. SENNOSIDES. [Concomitant]
     Active Substance: SENNOSIDES
     Indication: CONSTIPATION
     Dosage: 20 MG, QD
     Route: 048
     Dates: start: 201403, end: 20150622
  3. RIZE [Concomitant]
     Active Substance: CLOTIAZEPAM
     Indication: ANXIETY
     Dosage: 5 MG, QD
     Route: 048
     Dates: start: 201403, end: 20150622
  4. BETAHISTINE MESYLATE [Concomitant]
     Active Substance: BETAHISTINE MESILATE
     Indication: VERTIGO
     Dosage: 6 MG, BID
     Route: 048
     Dates: start: 20141112, end: 20150622
  5. TIZANIDINE HYDROCHLORIDE. [Concomitant]
     Active Substance: TIZANIDINE HYDROCHLORIDE
     Indication: MUSCULOSKELETAL PAIN
     Dosage: 1 MG, BID
     Route: 048
     Dates: start: 20130116, end: 20150622
  6. PL [Concomitant]
     Active Substance: ACETAMINOPHEN\CAFFEINE\PROMETHAZINE\SALICYLAMIDE
     Indication: NASOPHARYNGITIS
     Dosage: 1 G, ONCE
     Route: 048
     Dates: start: 20150607, end: 20150607
  7. BROTIZOLAM [Concomitant]
     Active Substance: BROTIZOLAM
     Indication: INSOMNIA
     Dosage: 0.25 MG, QD
     Route: 048
     Dates: start: 20120213, end: 20150622
  8. CETIRIZINE HYDROCHLORIDE. [Concomitant]
     Active Substance: CETIRIZINE HYDROCHLORIDE
     Indication: SEASONAL ALLERGY
     Dosage: 10 MG, QD
     Route: 048
     Dates: start: 201403, end: 20150622
  9. ISOBIDE [Concomitant]
     Active Substance: ISOSORBIDE
     Indication: MENIERE^S DISEASE
     Dosage: 30 ML, TID
     Route: 048
     Dates: start: 20150609, end: 20150622
  10. DIHYDROCODEINE PHOSPHATE [Concomitant]
     Active Substance: DIHYDROCODEINE PHOSPHATE
     Indication: COUGH
     Dosage: 1 G, PRN
     Route: 048
     Dates: start: 20150203, end: 20150622
  11. TRINOSIN [Concomitant]
     Active Substance: ADENOSINE TRIPHOSPHATE DISODIUM
     Indication: MENIERE^S DISEASE
     Dosage: 1 G, TID
     Route: 048
     Dates: start: 20150609, end: 20150622
  12. BROMHEXINE HYDROCHLORIDE [Concomitant]
     Active Substance: BROMHEXINE HYDROCHLORIDE
     Indication: PHARYNGITIS
     Dosage: 4 MG, BID
     Route: 048
     Dates: start: 20141016, end: 20150622
  13. LANSOPRAZOLE. [Concomitant]
     Active Substance: LANSOPRAZOLE
     Indication: PROPHYLAXIS
     Dosage: 15 MG, QD
     Route: 048
     Dates: start: 201403, end: 20150622
  14. PL [Concomitant]
     Active Substance: ACETAMINOPHEN\CAFFEINE\PROMETHAZINE\SALICYLAMIDE
     Dosage: 1 G, TID
     Route: 048
     Dates: start: 20150619, end: 20150622
  15. MOHRUS [Concomitant]
     Active Substance: KETOPROFEN
     Indication: ARTHRALGIA
     Dosage: 20 MG, QD
     Route: 061
     Dates: start: 201403, end: 20150622
  16. PEMBROLIZUMAB. [Suspect]
     Active Substance: PEMBROLIZUMAB
     Indication: MALIGNANT MELANOMA
     Dosage: 2 MG/KG, Q3W
     Route: 042
     Dates: start: 20140918, end: 20150512
  17. MECOBALAMIN [Concomitant]
     Active Substance: METHYLCOBALAMIN
     Indication: NEUROPATHY PERIPHERAL
     Dosage: 0.5 MG, BID
     Route: 048
     Dates: start: 20110717, end: 20150622
  18. LOXOPROFEN SODIUM [Concomitant]
     Active Substance: LOXOPROFEN SODIUM
     Indication: PROCEDURAL PAIN
     Dosage: 60 MG, PRN
     Route: 048
     Dates: start: 20110528, end: 20150622

REACTIONS (3)
  - Drug eruption [Recovering/Resolving]
  - Alanine aminotransferase increased [Not Recovered/Not Resolved]
  - Aspartate aminotransferase increased [Recovering/Resolving]

NARRATIVE: CASE EVENT DATE: 20150620
